FAERS Safety Report 4698813-4 (Version None)
Quarter: 2005Q2

REPORT INFORMATION
  Report Type: 
  Country: None (occurrence: None)
  Receive Date: 20050623
  Receipt Date: 20050616
  Transmission Date: 20051028
  Serious: Yes (Hospitalization)
  Sender: FDA-Public Use
  Company Number: 05-06-1067

PATIENT
  Sex: Female

DRUGS (4)
  1. VERAPAMIL HCL [Suspect]
     Indication: EXTRASYSTOLES
  2. LARIAM [Suspect]
     Indication: MALARIA PROPHYLAXIS
     Dosage: ORAL
     Route: 048
  3. ASPIRIN [Concomitant]
  4. SIMVASTATIN [Concomitant]

REACTIONS (3)
  - BLOOD PRESSURE INCREASED [None]
  - PARAESTHESIA [None]
  - SPEECH DISORDER [None]
